FAERS Safety Report 5745921-2 (Version None)
Quarter: 2008Q2

REPORT INFORMATION
  Report Type: 
  Country: None (occurrence: None)
  Receive Date: 20080520
  Receipt Date: 20080512
  Transmission Date: 20081010
  Serious: Yes (Death)
  Sender: FDA-Public Use
  Company Number: 163-21880-08050670

PATIENT
  Age: 65 Year
  Sex: Male

DRUGS (4)
  1. 0. [Suspect]
     Indication: CHRONIC LYMPHOCYTIC LEUKAEMIA
     Dosage: 10 MG, QD X21 DAYS, ORAL; 5 MG, QD X21 DAYS, ORAL
     Route: 048
     Dates: start: 20080409
  2. 0. [Suspect]
     Indication: MULTIPLE MYELOMA
     Dosage: 10 MG, QD X21 DAYS, ORAL; 5 MG, QD X21 DAYS, ORAL
     Route: 048
     Dates: start: 20080409
  3. 0. [Suspect]
     Indication: CHRONIC LYMPHOCYTIC LEUKAEMIA
     Dosage: 10 MG, QD X21 DAYS, ORAL; 5 MG, QD X21 DAYS, ORAL
     Route: 048
     Dates: start: 20080416
  4. 0. [Suspect]
     Indication: MULTIPLE MYELOMA
     Dosage: 10 MG, QD X21 DAYS, ORAL; 5 MG, QD X21 DAYS, ORAL
     Route: 048
     Dates: start: 20080416

REACTIONS (2)
  - BLOOD COUNT ABNORMAL [None]
  - INFECTION [None]
